FAERS Safety Report 6092235-X (Version None)
Quarter: 2009Q1

REPORT INFORMATION
  Report Type: 
  Country: None (occurrence: None)
  Receive Date: 20090225
  Receipt Date: 20090220
  Transmission Date: 20090719
  Serious: Yes (Hospitalization)
  Sender: FDA-Public Use
  Company Number: A0713048A

PATIENT
  Age: 59 Year
  Sex: Female

DRUGS (6)
  1. AVANDIA [Suspect]
     Dosage: 4MG PER DAY
     Route: 048
     Dates: start: 20031029, end: 20060304
  2. AVANDARYL [Suspect]
     Route: 048
     Dates: start: 20060624, end: 20060716
  3. AVANDAMET [Suspect]
     Dosage: 8000MG PER DAY
     Route: 048
     Dates: start: 20060717
  4. GABAPENTIN [Concomitant]
  5. PLAVIX [Concomitant]
  6. NAPROXEN [Concomitant]

REACTIONS (1)
  - MYOCARDIAL INFARCTION [None]
